FAERS Safety Report 5240781-0 (Version None)
Quarter: 2007Q1

REPORT INFORMATION
  Report Type: 
  Country: None (occurrence: None)
  Receive Date: 20070219
  Receipt Date: 20070206
  Transmission Date: 20070707
  Serious: Yes (Hospitalization)
  Sender: FDA-Public Use
  Company Number: US-ELI_LILLY_AND_COMPANY-US200702001037

PATIENT
  Age: 16 Year
  Sex: Female

DRUGS (4)
  1. CYMBALTA [Suspect]
     Indication: PANIC DISORDER
     Dosage: 60 MG, UNK
     Dates: start: 20060101
  2. CYMBALTA [Suspect]
     Dosage: 60 MG, UNK
  3. SEROQUEL [Concomitant]
  4. KLONOPIN [Concomitant]

REACTIONS (3)
  - ABNORMAL BEHAVIOUR [None]
  - CRYING [None]
  - PHYSICAL ASSAULT [None]
